FAERS Safety Report 5764739-8 (Version None)
Quarter: 2008Q2

REPORT INFORMATION
  Report Type: 
  Country: None (occurrence: None)
  Receive Date: 20080611
  Receipt Date: 20080602
  Transmission Date: 20081010
  Serious: Yes (Other)
  Sender: FDA-Public Use
  Company Number: JP-MERCK-0806USA00722

PATIENT

DRUGS (1)
  1. PEPCID [Suspect]
     Route: 042

REACTIONS (1)
  - RHABDOMYOLYSIS [None]
